FAERS Safety Report 9479459 (Version 1)
Quarter: 2013Q3

REPORT INFORMATION
  Report Type: Spontaneous
  Country: US (occurrence: US)
  Receive Date: 20130827
  Receipt Date: 20130827
  Transmission Date: 20140515
  Serious: No
  Sender: FDA-Public Use
  Company Number: US-PFIZER INC-2013247247

PATIENT
  Age: 9 Year
  Sex: Male

DRUGS (2)
  1. QUILLIVANT XR [Suspect]
     Indication: ATTENTION DEFICIT/HYPERACTIVITY DISORDER
     Dosage: 8 ML, 1X/DAY
     Route: 048
     Dates: start: 201301, end: 201308
  2. QUILLIVANT XR [Suspect]
     Dosage: 8 ML, 1X/DAY
     Route: 048
     Dates: start: 201308

REACTIONS (1)
  - Vomiting [Recovered/Resolved]
